FAERS Safety Report 7386782-8 (Version None)
Quarter: 2011Q1

REPORT INFORMATION
  Report Type: 
  Country: None (occurrence: None)
  Receive Date: 20110331
  Receipt Date: 20110317
  Transmission Date: 20110831
  Serious: Yes (Hospitalization, Other)
  Sender: FDA-Public Use
  Company Number: US-ELI_LILLY_AND_COMPANY-US201102003867

PATIENT
  Sex: Female
  Weight: 125.17 kg

DRUGS (17)
  1. GLYBURIDE [Concomitant]
  2. LOVASTATIN [Concomitant]
  3. MOTRIN [Concomitant]
  4. FORTEO [Suspect]
     Indication: OSTEOPOROSIS
     Dosage: 20 UG, DAILY (1/D)
     Route: 058
     Dates: start: 20110104
  5. ACTOS [Concomitant]
  6. METOPROLOL [Concomitant]
  7. CYMBALTA [Concomitant]
  8. ZOLPIDEM [Concomitant]
  9. AMLODIPINE BESYLATE [Concomitant]
  10. LEVOTHROID [Concomitant]
  11. LISINOPRIL [Concomitant]
  12. HYDROCODONE BITARTRATE [Concomitant]
  13. FORTEO [Suspect]
     Dosage: 20 UG, DAILY (1/D)
     Dates: end: 20110227
  14. METFORMIN HCL [Concomitant]
  15. JANUVIA [Concomitant]
  16. OMEPRAZOLE [Concomitant]
  17. GABAPENTIN [Concomitant]

REACTIONS (8)
  - OEDEMA PERIPHERAL [None]
  - UPPER LIMB FRACTURE [None]
  - MUSCULOSKELETAL DISORDER [None]
  - CONTUSION [None]
  - FEMUR FRACTURE [None]
  - HUMERUS FRACTURE [None]
  - FALL [None]
  - NERVE INJURY [None]
